FAERS Safety Report 16962265 (Version 2)
Quarter: 2019Q4

REPORT INFORMATION
  Report Type: Spontaneous
  Country: US (occurrence: US)
  Receive Date: 20191025
  Receipt Date: 20191107
  Transmission Date: 20200122
  Serious: No
  Sender: FDA-Public Use
  Company Number: US-MAYNE PHARMA-2019MYN000780

PATIENT

DRUGS (8)
  1. CLOZAPINE. [Suspect]
     Active Substance: CLOZAPINE
     Indication: SCHIZOAFFECTIVE DISORDER
     Dosage: 450 MG
     Route: 065
     Dates: end: 20191015
  2. INVEGA [Concomitant]
     Active Substance: PALIPERIDONE
     Indication: PSYCHIATRIC SYMPTOM
     Dosage: 6 MG
  3. CLOZAPINE. [Interacting]
     Active Substance: CLOZAPINE
     Dosage: 450 MG
     Dates: start: 20191026, end: 20191027
  4. IMMUNOGLOBULIN                     /07494701/ [Interacting]
     Active Substance: IMMUNE GLOBULIN NOS
     Indication: IMMUNE SYSTEM DISORDER
     Dosage: UNK
     Route: 042
     Dates: start: 20191014
  5. INVEGA [Concomitant]
     Active Substance: PALIPERIDONE
     Dosage: 3 MG
  6. CLOZAPINE. [Interacting]
     Active Substance: CLOZAPINE
     Dosage: 300 MG
     Dates: start: 20191018, end: 20191021
  7. CLOZAPINE. [Interacting]
     Active Substance: CLOZAPINE
     Dosage: 300 MG
     Dates: start: 20191028, end: 20191030
  8. CLOZAPINE. [Interacting]
     Active Substance: CLOZAPINE
     Dosage: 400 MG
     Dates: start: 20191031

REACTIONS (2)
  - Neutropenia [Recovered/Resolved]
  - Drug interaction [Unknown]

NARRATIVE: CASE EVENT DATE: 20191021
